FAERS Safety Report 8160558-6 (Version None)
Quarter: 2012Q1

REPORT INFORMATION
  Report Type: 
  Country: None (occurrence: None)
  Receive Date: 20120223
  Receipt Date: 20120123
  Transmission Date: 20120608
  Serious: Yes (Hospitalization)
  Sender: FDA-Public Use
  Company Number: FR-PFIZER INC-FR-WYE-H08502409

PATIENT
  Sex: Male

DRUGS (13)
  1. GENTAMICIN [Suspect]
     Indication: ENDOCARDITIS
     Dosage: UNK
     Route: 065
     Dates: start: 20080502, end: 20080501
  2. ATORVASTATIN [Suspect]
     Dosage: 1 DF
     Route: 048
     Dates: start: 19500101, end: 20080529
  3. LASIX [Suspect]
     Dosage: UNK
     Route: 065
     Dates: start: 20080515, end: 20080529
  4. SINEMET [Suspect]
     Route: 065
  5. ASPIRIN [Suspect]
     Dosage: UNK
     Route: 065
     Dates: start: 20080515, end: 20080529
  6. VANCOMYCIN [Suspect]
     Indication: ENDOCARDITIS
     Dosage: 2 GM, UNK
     Route: 042
     Dates: start: 20071227, end: 20080125
  7. RIFADIN [Suspect]
     Indication: ENDOCARDITIS
     Dosage: 3.0 UNK, UNK
     Route: 048
     Dates: start: 20080515, end: 20080527
  8. RAMIPRIL [Suspect]
     Dosage: 5 MG
     Route: 048
     Dates: start: 20080517, end: 20080529
  9. BISOPROLOL FUMARATE [Suspect]
     Indication: CARDIAC FAILURE
     Dosage: 1.25 MG, UNK
     Route: 048
     Dates: start: 20080506, end: 20080525
  10. STALEVO 100 [Suspect]
     Route: 065
  11. PANTOPRAZOLE SODIUM [Suspect]
     Indication: PROPHYLAXIS
     Dosage: 1 DF, UNK
     Route: 048
     Dates: start: 20080515, end: 20080529
  12. ATARAX [Suspect]
     Indication: ANXIETY
     Dosage: 1 DF
     Route: 048
     Dates: start: 20080310, end: 20080329
  13. LEXOMIL [Suspect]
     Indication: ANXIETY
     Dosage: 0.5 DF, 2X/DAY
     Route: 048
     Dates: start: 20080310, end: 20080529

REACTIONS (1)
  - DRUG RASH WITH EOSINOPHILIA AND SYSTEMIC SYMPTOMS [None]
